FAERS Safety Report 10094208 (Version 1)
Quarter: 2014Q2

REPORT INFORMATION
  Report Type: Spontaneous
  Country: US (occurrence: None)
  Receive Date: 20140421
  Receipt Date: 20140421
  Transmission Date: 20141212
  Serious: Yes (Hospitalization, Disabling)
  Sender: FDA-Public Use
  Company Number: None

PATIENT
  Age: 46 Year
  Sex: Female
  Weight: 97.98 kg

DRUGS (2)
  1. DEPAKOTE [Suspect]
     Indication: BIPOLAR DISORDER
  2. LITHIUM [Suspect]

REACTIONS (10)
  - Hypothyroidism [None]
  - Blood prolactin increased [None]
  - Obesity [None]
  - Anger [None]
  - Depressed mood [None]
  - Blood glucose increased [None]
  - Blood triglycerides increased [None]
  - Malaise [None]
  - Sleep disorder [None]
  - Withdrawal syndrome [None]
